FAERS Safety Report 17203254 (Version 1)
Quarter: 2019Q4

REPORT INFORMATION
  Report Type: Spontaneous
  Country: CA (occurrence: CA)
  Receive Date: 20191226
  Receipt Date: 20191226
  Transmission Date: 20200122
  Serious: Yes (Other)
  Sender: FDA-Public Use
  Company Number: CA-TEVA-2019-CA-1156364

PATIENT
  Age: 46 Year
  Sex: Male
  Weight: 82 kg

DRUGS (16)
  1. AMIODARONE [Concomitant]
     Active Substance: AMIODARONE
  2. GLYCERIN SUPPOSITORIES [Concomitant]
  3. BISACODYL. [Concomitant]
     Active Substance: BISACODYL
  4. HYDROMORPHONE [Concomitant]
     Active Substance: HYDROMORPHONE
  5. MACROGOL [Concomitant]
     Active Substance: POLYETHYLENE GLYCOLS
  6. METOPROLOL. [Concomitant]
     Active Substance: METOPROLOL
  7. QUETIAPINE. [Concomitant]
     Active Substance: QUETIAPINE
  8. PREGABALIN. [Suspect]
     Active Substance: PREGABALIN
     Indication: PAIN
     Dosage: 50 MILLIGRAM DAILY;
     Route: 048
  9. ACETAMINOPHEN. [Concomitant]
     Active Substance: ACETAMINOPHEN
  10. FENTANYL. [Concomitant]
     Active Substance: FENTANYL
  11. ONDANSETRON [Concomitant]
     Active Substance: ONDANSETRON
  12. PANTOPRAZOLE [Concomitant]
     Active Substance: PANTOPRAZOLE
  13. SENNOSIDES. [Concomitant]
     Active Substance: SENNOSIDES
  14. SEVELAMER [Concomitant]
     Active Substance: SEVELAMER
  15. CLOXACILLIN [Concomitant]
     Active Substance: CLOXACILLIN
  16. DOCUSATE SODIUM. [Concomitant]
     Active Substance: DOCUSATE SODIUM

REACTIONS (3)
  - Petit mal epilepsy [Recovered/Resolved]
  - Myoclonus [Recovered/Resolved]
  - Quality of life decreased [Recovered/Resolved]
